FAERS Safety Report 21508820 (Version 1)
Quarter: 2022Q4

REPORT INFORMATION
  Report Type: Spontaneous
  Country: FI (occurrence: FI)
  Receive Date: 20221026
  Receipt Date: 20221026
  Transmission Date: 20230113
  Serious: Yes (Other)
  Sender: FDA-Public Use
  Company Number: FI-002147023-NVSC2022FI232228

PATIENT

DRUGS (1)
  1. RUXOLITINIB [Suspect]
     Active Substance: RUXOLITINIB
     Indication: Myelofibrosis
     Dosage: UNK
     Route: 065

REACTIONS (2)
  - Second primary malignancy [Unknown]
  - Neuroendocrine carcinoma of the skin [Unknown]

NARRATIVE: CASE EVENT DATE: 20220101
